FAERS Safety Report 7145202-9 (Version None)
Quarter: 2010Q4

REPORT INFORMATION
  Report Type: 
  Country: None (occurrence: None)
  Receive Date: 20101124
  Receipt Date: 20101111
  Transmission Date: 20110411
  Serious: Yes (Hospitalization)
  Sender: FDA-Public Use
  Company Number: DSA_44329_2010

PATIENT
  Age: 85 Year
  Sex: Male

DRUGS (7)
  1. ENALAPRIL MALEATE [Suspect]
     Indication: CARDIAC FAILURE
     Dosage: (ONCE DAILY ORAL)
     Route: 048
     Dates: end: 20100601
  2. METOPROLOL SUCCINATE [Suspect]
     Indication: CARDIAC FAILURE
     Dosage: (100 MG DAILY ORAL)
     Route: 048
  3. IMPUGAN (IMPUGAN-FUROSEMIDE) (NOT SPECIFIED) [Suspect]
     Indication: CARDIAC FAILURE
     Dosage: (DF ORAL)
     Route: 048
  4. IMDUR [Suspect]
     Indication: CARDIAC DISORDER
     Dosage: (30 MG DAILY ORAL)
     Route: 048
  5. ALVEDON [Concomitant]
  6. ALFUZOSINE HCL SANDOZ [Concomitant]
  7. WARAN [Concomitant]

REACTIONS (3)
  - FALL [None]
  - HYPOTENSION [None]
  - RIB FRACTURE [None]
